FAERS Safety Report 15551487 (Version 2)
Quarter: 2018Q4

REPORT INFORMATION
  Report Type: Report from Study
  Country: US (occurrence: US)
  Receive Date: 20181025
  Receipt Date: 20181108
  Transmission Date: 20190205
  Serious: No
  Sender: FDA-Public Use
  Company Number: US-JAZZ-2018-US-014316

PATIENT
  Sex: Female

DRUGS (37)
  1. MELATONIN [Concomitant]
     Active Substance: MELATONIN
  2. SERTRALINE [Concomitant]
     Active Substance: SERTRALINE HYDROCHLORIDE
  3. XYREM [Suspect]
     Active Substance: SODIUM OXYBATE
     Indication: NARCOLEPSY
     Dosage: 1 G, BID
     Route: 048
     Dates: start: 201612, end: 201612
  4. ZINC. [Concomitant]
     Active Substance: ZINC
  5. DIPHENHYDRAMINE. [Concomitant]
     Active Substance: DIPHENHYDRAMINE
  6. NALTREXONE [Concomitant]
     Active Substance: NALTREXONE
  7. TIZANIDINE HCL [Concomitant]
     Active Substance: TIZANIDINE HYDROCHLORIDE
  8. RYTARY [Concomitant]
     Active Substance: CARBIDOPA\LEVODOPA
  9. METRONIDAZOLE. [Concomitant]
     Active Substance: METRONIDAZOLE
  10. AMOXICILLIN. [Concomitant]
     Active Substance: AMOXICILLIN
  11. PROPRANOLOL [Concomitant]
     Active Substance: PROPRANOLOL HYDROCHLORIDE
  12. NORCO [Concomitant]
     Active Substance: ACETAMINOPHEN\HYDROCODONE BITARTRATE
  13. VITAMIN B COMPLEX [Concomitant]
     Active Substance: CYANOCOBALAMIN\DEXPANTHENOL\NIACINAMIDE\PYRIDOXINE HYDROCHLORIDE\RIBOFLAVIN 5^-PHOSPHATE SODIUM\THIAMINE HYDROCHLORIDE\VITAMIN B COMPLEX
  14. BETHANECHOL [Concomitant]
     Active Substance: BETHANECHOL
  15. COPPER [Concomitant]
     Active Substance: COPPER
  16. NUVIGIL [Concomitant]
     Active Substance: ARMODAFINIL
  17. LYRICA [Concomitant]
     Active Substance: PREGABALIN
  18. LORZONE [Concomitant]
     Active Substance: CHLORZOXAZONE
  19. MECLIZINE HCL [Concomitant]
     Active Substance: MECLIZINE HYDROCHLORIDE
  20. OMEGA 3 FISH OILS [Concomitant]
     Active Substance: OMEGA-3 FATTY ACIDS
  21. RIZATRIPTAN. [Concomitant]
     Active Substance: RIZATRIPTAN
  22. ASCORBIC ACID. [Concomitant]
     Active Substance: ASCORBIC ACID
  23. XYREM [Suspect]
     Active Substance: SODIUM OXYBATE
     Dosage: DOSE ADJUSTMENT
     Route: 048
     Dates: start: 201612, end: 201712
  24. CLONAZEPAM. [Concomitant]
     Active Substance: CLONAZEPAM
  25. MIDODRINE HCL [Concomitant]
     Active Substance: MIDODRINE HYDROCHLORIDE
  26. LAMICTAL [Concomitant]
     Active Substance: LAMOTRIGINE
  27. ESOMEPRAZOLE MAGNESIUM. [Concomitant]
     Active Substance: ESOMEPRAZOLE MAGNESIUM
  28. RELPAX [Concomitant]
     Active Substance: ELETRIPTAN HYDROBROMIDE
  29. RITALIN [Concomitant]
     Active Substance: METHYLPHENIDATE HYDROCHLORIDE
  30. VITAMIN D3 [Concomitant]
     Active Substance: CHOLECALCIFEROL
  31. LEUCOVORIN CALCIUM. [Concomitant]
     Active Substance: LEUCOVORIN CALCIUM
  32. BOTOX [Concomitant]
     Active Substance: ONABOTULINUMTOXINA
  33. XYREM [Suspect]
     Active Substance: SODIUM OXYBATE
     Dosage: 6 G, BID
     Route: 048
     Dates: start: 201712
  34. CROMOLYN SODIUM. [Concomitant]
     Active Substance: CROMOLYN SODIUM
  35. ADDERALL [Concomitant]
     Active Substance: AMPHETAMINE ASPARTATE\AMPHETAMINE SULFATE\DEXTROAMPHETAMINE SACCHARATE\DEXTROAMPHETAMINE SULFATE
  36. EXCEDRIN MIGRAINE [Concomitant]
     Active Substance: ACETAMINOPHEN\ASPIRIN\CAFFEINE
  37. MAGNESIUM GLUCONATE [Concomitant]
     Active Substance: MAGNESIUM GLUCONATE

REACTIONS (4)
  - Autonomic nervous system imbalance [Not Recovered/Not Resolved]
  - Muscle tightness [Not Recovered/Not Resolved]
  - Tachycardia [Not Recovered/Not Resolved]
  - Pain [Unknown]
